FAERS Safety Report 8576799-X (Version None)
Quarter: 2012Q3

REPORT INFORMATION
  Report Type: 
  Country: None (occurrence: None)
  Receive Date: 20120807
  Receipt Date: 20120802
  Transmission Date: 20120928
  Serious: Yes (Hospitalization)
  Sender: FDA-Public Use
  Company Number: US-AMGEN-KDC417949

PATIENT
  Age: 87 Year
  Sex: Female

DRUGS (8)
  1. SEVELAMER [Concomitant]
     Dosage: 4 G, TID
     Route: 048
     Dates: start: 20061016
  2. DIATX [Concomitant]
     Dosage: UNK UNK, QD
     Route: 048
     Dates: start: 20061016
  3. IRON [Concomitant]
     Dosage: UNK UNK, UNK
     Route: 042
  4. CINACALCET HYDROCHLORIDE [Suspect]
     Indication: HYPERPARATHYROIDISM SECONDARY
     Dosage: UNK UNK, QD
     Route: 048
     Dates: start: 20070321
  5. VALSARTAN [Concomitant]
     Dosage: 80 MG, BID
     Route: 048
     Dates: start: 20060904
  6. CONJUGATED ESTROGENS [Concomitant]
     Dosage: .625 MG, QD
     Route: 048
     Dates: start: 20040326
  7. TOPROL-XL [Concomitant]
     Dosage: 50 MG, 4 TIMES/WK
     Route: 048
     Dates: start: 20070131
  8. UNSPECIFIED MEDICATION [Concomitant]

REACTIONS (1)
  - ATRIAL FIBRILLATION [None]
